FAERS Safety Report 15868341 (Version 3)
Quarter: 2019Q2

REPORT INFORMATION
  Report Type: Spontaneous
  Country: US (occurrence: US)
  Receive Date: 20190125
  Receipt Date: 20190429
  Transmission Date: 20190711
  Serious: Yes (Death)
  Sender: FDA-Public Use
  Company Number: US-ASTRAZENECA-2019SE14309

PATIENT
  Sex: Male

DRUGS (4)
  1. SYNAGIS [Suspect]
     Active Substance: PALIVIZUMAB
     Indication: RESPIRATORY SYNCYTIAL VIRUS INFECTION
     Dosage: UNKNOWN
     Route: 030
     Dates: start: 201811
  2. SYNAGIS [Suspect]
     Active Substance: PALIVIZUMAB
     Indication: URETHRAL VALVES
     Dosage: UNKNOWN
     Route: 030
     Dates: start: 201811
  3. SYNAGIS [Suspect]
     Active Substance: PALIVIZUMAB
     Indication: URETHRAL VALVES
     Dosage: UNKNOWN
     Route: 030
     Dates: start: 201812, end: 201901
  4. SYNAGIS [Suspect]
     Active Substance: PALIVIZUMAB
     Indication: RESPIRATORY SYNCYTIAL VIRUS INFECTION
     Dosage: UNKNOWN
     Route: 030
     Dates: start: 201812, end: 201901

REACTIONS (1)
  - Renal failure [Fatal]
